FAERS Safety Report 8743305 (Version 2)
Quarter: 2015Q3

REPORT INFORMATION
  Report Type: Spontaneous
  Country: ZA (occurrence: ZA)
  Receive Date: 20120824
  Receipt Date: 20150929
  Transmission Date: 20151125
  Serious: Yes (Hospitalization, Other)
  Sender: FDA-Public Use
  Company Number: ZA-BRISTOL-MYERS SQUIBB COMPANY-16898132

PATIENT
  Age: 21 Year
  Sex: Female

DRUGS (1)
  1. WARFARIN SODIUM. [Suspect]
     Active Substance: WARFARIN SODIUM
     Indication: ANTICOAGULANT THERAPY
     Dosage: 5 MG, UNK
     Route: 065

REACTIONS (3)
  - Live birth [Unknown]
  - Cardiac valve replacement complication [Unknown]
  - Maternal exposure during pregnancy [Recovered/Resolved]
